FAERS Safety Report 4379051-1 (Version None)
Quarter: 2004Q2

REPORT INFORMATION
  Report Type: 
  Country: None (occurrence: None)
  Receive Date: 20040601
  Receipt Date: 20040401
  Transmission Date: 20050107
  Serious: No
  Sender: FDA-Public Use
  Company Number: WAES 0404USA00161

PATIENT
  Age: 75 Year
  Sex: Female

DRUGS (5)
  1. ZETIA [Suspect]
     Dosage: 10 MG/DAILY/PO
     Route: 048
     Dates: start: 20040301
  2. MULTIVITAMIN [Concomitant]
  3. OS-CAL [Concomitant]
  4. TOPROL-XL [Concomitant]
  5. SPIRONOLACTONE [Concomitant]

REACTIONS (1)
  - INTERNATIONAL NORMALISED RATIO DECREASED [None]
